FAERS Safety Report 5874551-7 (Version None)
Quarter: 2008Q3

REPORT INFORMATION
  Report Type: 
  Country: None (occurrence: None)
  Receive Date: 20080909
  Receipt Date: 20080902
  Transmission Date: 20090109
  Serious: Yes (Other)
  Sender: FDA-Public Use
  Company Number: PHEH2008US00534

PATIENT
  Sex: Male

DRUGS (3)
  1. TASIGNA [Suspect]
     Indication: CHRONIC MYELOID LEUKAEMIA
     Dosage: 200 MG, BID
     Route: 048
     Dates: start: 20071219, end: 20080130
  2. TASIGNA [Suspect]
     Dosage: 400 MG, QD
     Route: 048
     Dates: start: 20080201
  3. TASIGNA [Suspect]
     Dosage: 200 MG CAPSULES/ TAKING 2 CAPS IN MORNING AND ONE CAP IN EVENING

REACTIONS (9)
  - ANGINA PECTORIS [None]
  - FATIGUE [None]
  - HAEMATOCRIT DECREASED [None]
  - HAEMOGLOBIN DECREASED [None]
  - HEADACHE [None]
  - PRURITUS GENERALISED [None]
  - SOMNOLENCE [None]
  - TENDON DISORDER [None]
  - THROMBOCYTOPENIA [None]
